FAERS Safety Report 7267983-6 (Version None)
Quarter: 2010Q4

REPORT INFORMATION
  Report Type: 
  Country: None (occurrence: None)
  Receive Date: 20101206
  Receipt Date: 20100825
  Transmission Date: 20110411
  Serious: No
  Sender: FDA-Public Use
  Company Number: 2010SP046112

PATIENT
  Age: 35 Year
  Sex: Male

DRUGS (2)
  1. SAPHRIS [Suspect]
     Indication: BIPOLAR DISORDER
     Dosage: 10 MG; BID; SL
     Route: 060
     Dates: start: 20100820, end: 20100821
  2. VIVANCE (LISDEXAMFETAMINE DIMESYLATE) [Concomitant]

REACTIONS (1)
  - SEDATION [None]
